FAERS Safety Report 6046615-9 (Version None)
Quarter: 2009Q1

REPORT INFORMATION
  Report Type: 
  Country: None (occurrence: None)
  Receive Date: 20090122
  Receipt Date: 20090114
  Transmission Date: 20090719
  Serious: Yes (Other)
  Sender: FDA-Public Use
  Company Number: PHHY2008BR09085

PATIENT
  Age: 75 Year
  Sex: Female
  Weight: 58 kg

DRUGS (5)
  1. FORASEQ [Suspect]
     Indication: ASTHMA
     Dosage: UNK
  2. BEROTEC [Concomitant]
     Indication: ASTHMA
     Dosage: UNK
  3. TANDRILAX [Concomitant]
     Indication: MUSCULOSKELETAL PAIN
     Dosage: 300 MG, BID
     Route: 048
  4. ACETAMINOPHEN [Concomitant]
     Indication: MUSCULOSKELETAL PAIN
     Dosage: 750 MG, PRN
     Route: 048
  5. OMEPRAZOLE [Concomitant]
     Indication: ABDOMINAL DISCOMFORT
     Dosage: UNK
     Route: 048

REACTIONS (10)
  - ABASIA [None]
  - ANGIOPLASTY [None]
  - CATARACT OPERATION [None]
  - DRUG INEFFECTIVE [None]
  - DYSPNOEA [None]
  - FEELING ABNORMAL [None]
  - HEART RATE INCREASED [None]
  - INFARCTION [None]
  - NAUSEA [None]
  - TREMOR [None]
